FAERS Safety Report 10163549 (Version 1)
Quarter: 2014Q2

REPORT INFORMATION
  Report Type: Report from Study
  Country: MX (occurrence: MX)
  Receive Date: 20140509
  Receipt Date: 20140509
  Transmission Date: 20141212
  Serious: Yes (Other)
  Sender: FDA-Public Use
  Company Number: PHHY2014MX054965

PATIENT
  Sex: Female

DRUGS (4)
  1. GALVUS MET [Suspect]
     Indication: DIABETES MELLITUS
     Dosage: 2.5 DF (1 MORNING, 1 NIGHT AND HALF IN AFTERNOON), UNK
     Route: 048
  2. GALVUS MET [Suspect]
     Dosage: 1 DF, DAILY
     Route: 048
  3. GALVUS MET [Suspect]
     Dosage: 2.5 DF (500 MG METF/ 50 MG VILD), DAILY (ONE IN MORNINGS AND NIGHTS AND A HALF IN AFTERNOON)
     Route: 048
     Dates: start: 201401
  4. METFORMIN [Suspect]
     Dosage: UNK UKN, UNK

REACTIONS (6)
  - Cardiac failure [Not Recovered/Not Resolved]
  - Hypertension [Not Recovered/Not Resolved]
  - Blood triglycerides abnormal [Not Recovered/Not Resolved]
  - Dizziness [Not Recovered/Not Resolved]
  - Blood glucose increased [Unknown]
  - Wrong technique in drug usage process [Unknown]
